FAERS Safety Report 4357788-8 (Version None)
Quarter: 2004Q2

REPORT INFORMATION
  Report Type: 
  Country: None (occurrence: None)
  Receive Date: 20040513
  Receipt Date: 20010813
  Transmission Date: 20050107
  Serious: Yes (Congenital Anomaly)
  Sender: FDA-Public Use
  Company Number: US-MERCK-01081322B1

PATIENT
  Sex: Male
  Weight: 4 kg

DRUGS (7)
  1. ZYRTEC [Concomitant]
     Dates: start: 19990201
  2. PEPCID [Concomitant]
     Dates: start: 19990201
  3. FLOVENT [Concomitant]
     Dates: start: 19990201
  4. INSULIN [Concomitant]
     Dates: start: 20011115
  5. SINGULAIR [Suspect]
     Indication: ASTHMA
     Dates: start: 19990201
  6. ZANTAC [Concomitant]
  7. SEREVENT [Concomitant]
     Dates: start: 19990201

REACTIONS (8)
  - CAESAREAN SECTION [None]
  - CEPHALO-PELVIC DISPROPORTION [None]
  - COMPLICATIONS OF MATERNAL EXPOSURE TO THERAPEUTIC DRUGS [None]
  - DACRYOSTENOSIS CONGENITAL [None]
  - GESTATIONAL DIABETES [None]
  - MATERNAL DRUGS AFFECTING FOETUS [None]
  - PREGNANCY [None]
  - TACHYCARDIA FOETAL [None]
